FAERS Safety Report 9925220 (Version 1)
Quarter: 2014Q1

REPORT INFORMATION
  Report Type: Spontaneous
  Country: JP (occurrence: JP)
  Receive Date: 20140226
  Receipt Date: 20140226
  Transmission Date: 20141002
  Serious: Yes (Other)
  Sender: FDA-Public Use
  Company Number: JP-PFIZER INC-2014051255

PATIENT
  Age: 77 Year
  Sex: Male
  Weight: 57 kg

DRUGS (1)
  1. PIPERACILLIN/TAZOBACTAM [Suspect]
     Indication: LIVER ABSCESS
     Dosage: 4.5 G, EVERY 6 HOURS
     Route: 042

REACTIONS (2)
  - Sepsis [Unknown]
  - Pseudomonal bacteraemia [Unknown]
